FAERS Safety Report 9518654 (Version 3)
Quarter: 2014Q1

REPORT INFORMATION
  Report Type: Report from Study
  Country: NL (occurrence: NL)
  Receive Date: 20130912
  Receipt Date: 20140312
  Transmission Date: 20141002
  Serious: Yes (Other)
  Sender: FDA-Public Use
  Company Number: PHHY2013NL100439

PATIENT
  Sex: Female

DRUGS (4)
  1. ZOMETA [Suspect]
     Indication: BREAST CANCER METASTATIC
     Dosage: 4 MG PER 100 ML, ONCE EVERY 6 WEEKS
     Route: 042
  2. ZOMETA [Suspect]
     Dosage: 4 MG PER 100 ML ONCE EVERY 6 WEEKS
     Route: 042
     Dates: start: 20121211
  3. ZOMETA [Suspect]
     Dosage: 4 MG PER 100 ML ONCE EVERY 6 WEEKS
     Route: 042
     Dates: start: 20130814
  4. ZOMETA [Suspect]
     Dosage: 4 MG PER 100 ML ONCE EVERY 6 WEEKS
     Route: 042
     Dates: start: 20130911

REACTIONS (4)
  - Lymphadenopathy [Recovering/Resolving]
  - Breast cancer [Unknown]
  - Malignant neoplasm progression [Unknown]
  - Metastases to lymph nodes [Unknown]
